FAERS Safety Report 5901734-X (Version None)
Quarter: 2008Q3

REPORT INFORMATION
  Report Type: 
  Country: None (occurrence: None)
  Receive Date: 20080929
  Receipt Date: 20080918
  Transmission Date: 20090109
  Serious: Yes (Life-Threatening, Hospitalization)
  Sender: FDA-Public Use
  Company Number: JP-JNJFOC-20080600076

PATIENT
  Sex: Female
  Weight: 48 kg

DRUGS (23)
  1. REMICADE [Suspect]
     Route: 042
  2. REMICADE [Suspect]
     Route: 042
  3. REMICADE [Suspect]
     Indication: RHEUMATOID ARTHRITIS
     Route: 042
  4. RHEUMATREX [Suspect]
     Indication: RHEUMATOID ARTHRITIS
     Route: 048
  5. PREDNISOLONE [Suspect]
     Route: 048
  6. PREDNISOLONE [Suspect]
     Route: 048
  7. PREDNISOLONE [Suspect]
     Route: 048
  8. PREDNISOLONE [Suspect]
     Route: 048
  9. PREDNISOLONE [Suspect]
     Indication: RHEUMATOID ARTHRITIS
     Route: 048
  10. PREDNISOLONE [Suspect]
     Indication: DRUG USE FOR UNKNOWN INDICATION
     Route: 048
  11. OMEPRAZOLE [Suspect]
     Indication: GASTRIC ULCER
  12. COTRIM [Suspect]
  13. COTRIM [Suspect]
     Indication: URINARY TRACT INFECTION
  14. LANSOPRAZOLE [Suspect]
     Indication: DRUG USE FOR UNKNOWN INDICATION
     Route: 048
  15. HALCION [Concomitant]
     Indication: INSOMNIA
     Route: 048
  16. PRAVASTATIN SODIUM [Concomitant]
     Indication: HYPERLIPIDAEMIA
     Route: 048
  17. HIBON [Concomitant]
     Dosage: TAPERED DOSE
     Route: 048
  18. NU-LOTAN [Concomitant]
     Indication: HYPERTENSION
     Route: 048
  19. PYDOXAL [Concomitant]
     Indication: VITAMIN SUPPLEMENTATION
     Route: 048
  20. ISCOTIN [Concomitant]
     Indication: ANTIBIOTIC PROPHYLAXIS
     Route: 048
  21. VOLTAREN [Concomitant]
     Indication: RHEUMATOID ARTHRITIS
     Route: 048
  22. FOLIAMIN [Concomitant]
     Indication: OSTEOPOROSIS PROPHYLAXIS
     Route: 048
  23. MYSLEE [Concomitant]
     Route: 048

REACTIONS (10)
  - ANAEMIA [None]
  - BLOOD CREATINE INCREASED [None]
  - BLOOD POTASSIUM INCREASED [None]
  - CANDIDIASIS [None]
  - GASTRIC ULCER [None]
  - HEPATIC FUNCTION ABNORMAL [None]
  - PNEUMOCYSTIS JIROVECI PNEUMONIA [None]
  - PRURITUS [None]
  - RASH [None]
  - URINARY TRACT INFECTION [None]
